FAERS Safety Report 22088289 (Version 5)
Quarter: 2025Q1

REPORT INFORMATION
  Report Type: Report from Study
  Country: DE (occurrence: DE)
  Receive Date: 20230313
  Receipt Date: 20250124
  Transmission Date: 20250408
  Serious: No
  Sender: ROCHE
  Company Number: DE-ROCHE-3233561

PATIENT
  Age: 52 Year
  Sex: Female

DRUGS (3)
  1. OCREVUS [Suspect]
     Active Substance: OCRELIZUMAB
     Indication: Relapsing-remitting multiple sclerosis
     Dosage: 600 MG
     Route: 042
     Dates: start: 20221129
  2. CHOLECALCIFEROL [Concomitant]
     Active Substance: CHOLECALCIFEROL
  3. PROPIONIC ACID [Concomitant]
     Active Substance: PROPIONIC ACID

REACTIONS (16)
  - Throat irritation [Recovered/Resolved]
  - Pallor [Recovering/Resolving]
  - Feeling cold [Recovering/Resolving]
  - Pain in extremity [Recovered/Resolved]
  - Oral herpes zoster [Recovered/Resolved]
  - Acne pustular [Recovered/Resolved]
  - Human papilloma virus test positive [Recovered/Resolved]
  - Conjunctivitis [Unknown]
  - Ocular hyperaemia [Unknown]
  - Eye pruritus [Unknown]
  - Oral herpes [Unknown]
  - Dry skin [Unknown]
  - Raynaud^s phenomenon [Not Recovered/Not Resolved]
  - B-lymphocyte count decreased [Recovered/Resolved]
  - Pruritus [Not Recovered/Not Resolved]
  - Blood immunoglobulin M decreased [Not Recovered/Not Resolved]

NARRATIVE: CASE EVENT DATE: 20221129
